FAERS Safety Report 25136580 (Version 1)
Quarter: 2025Q1

REPORT INFORMATION
  Report Type: Spontaneous
  Country: CN (occurrence: CN)
  Receive Date: 20250328
  Receipt Date: 20250328
  Transmission Date: 20250409
  Serious: Yes (Death, Other)
  Sender: BAYER HEALTHCARE PHARMACEUTICALS INC.
  Company Number: CN-BAYER-2025A040624

PATIENT
  Age: 67 Year
  Sex: Male

DRUGS (4)
  1. SORAFENIB [Suspect]
     Active Substance: SORAFENIB
     Indication: Renal cancer metastatic
     Dosage: 400 MG, BID
     Dates: start: 202106
  2. TEMOZOLOMIDE [Concomitant]
     Active Substance: TEMOZOLOMIDE
     Indication: Renal cancer metastatic
     Dates: start: 20231020
  3. TEMOZOLOMIDE [Concomitant]
     Active Substance: TEMOZOLOMIDE
     Indication: Renal cancer metastatic
  4. BEVACIZUMAB [Concomitant]
     Active Substance: BEVACIZUMAB
     Indication: Renal cancer metastatic
     Dosage: 300 MG, D8, Q2WK
     Dates: start: 20231027

REACTIONS (6)
  - Pneumonia [Fatal]
  - Tumour rupture [None]
  - Tumour haemorrhage [None]
  - Renal failure [None]
  - Abdominal pain [None]
  - Haematuria [None]

NARRATIVE: CASE EVENT DATE: 20231218
